FAERS Safety Report 9325071 (Version 1)
Quarter: 2013Q2

REPORT INFORMATION
  Report Type: Report from Study
  Country: GB (occurrence: AR)
  Receive Date: 20130603
  Receipt Date: 20130603
  Transmission Date: 20140414
  Serious: Yes (Hospitalization, Other)
  Sender: FDA-Public Use
  Company Number: AR-B.I. PHARMACEUTICALS,INC./RIDGEFIELD-2013-BI-15112GD

PATIENT
  Age: 53 Year
  Sex: Male

DRUGS (5)
  1. TIOTROPIUM [Suspect]
     Indication: CHRONIC OBSTRUCTIVE PULMONARY DISEASE
     Dosage: 18 MCG
     Route: 055
  2. LEVOFLOXACIN [Suspect]
     Dosage: 500 MG
     Route: 048
     Dates: start: 20111117, end: 20111119
  3. MEPREDNISONE [Suspect]
  4. IPRATROPIUM [Concomitant]
  5. SALBUTAMOL [Concomitant]

REACTIONS (2)
  - Chronic obstructive pulmonary disease [Recovered/Resolved]
  - Tendon rupture [Not Recovered/Not Resolved]
